FAERS Safety Report 6235698-9 (Version None)
Quarter: 2009Q2

REPORT INFORMATION
  Report Type: 
  Country: None (occurrence: None)
  Receive Date: 20090616
  Receipt Date: 20090608
  Transmission Date: 20091009
  Serious: Yes (Death, Hospitalization, Other)
  Sender: FDA-Public Use
  Company Number: SPV1-2009-01187

PATIENT
  Age: 81 Year
  Sex: Female
  Weight: 38.5 kg

DRUGS (5)
  1. FOSRENOL [Suspect]
     Dosage: 100MG 3 TABLETS DAILY
  2. BLOOD PRESSURE MEDICATIONS [Concomitant]
  3. THYROID MEDICATIONS [Concomitant]
  4. CHOLESTEROL MEDICATIONS [Concomitant]
  5. TRIGLYCERIDE MEDICATIONS [Concomitant]

REACTIONS (11)
  - ATRIAL FIBRILLATION [None]
  - CARDIAC FAILURE CONGESTIVE [None]
  - CLOSTRIDIAL INFECTION [None]
  - DECUBITUS ULCER [None]
  - DIALYSIS [None]
  - GASTROINTESTINAL HAEMORRHAGE [None]
  - LUNG DISORDER [None]
  - MYOCARDIAL INFARCTION [None]
  - MYOCARDIAL ISCHAEMIA [None]
  - PNEUMONIA ASPIRATION [None]
  - WHITE BLOOD CELL COUNT INCREASED [None]
